FAERS Safety Report 8265756-9 (Version None)
Quarter: 2012Q2

REPORT INFORMATION
  Report Type: 
  Country: None (occurrence: None)
  Receive Date: 20120403
  Receipt Date: 20120326
  Transmission Date: 20120825
  Serious: Yes (Hospitalization)
  Sender: FDA-Public Use
  Company Number: DAV-AE-MTX-12-19

PATIENT
  Age: 79 Year
  Sex: Female

DRUGS (1)
  1. METHOTREXATE [Suspect]
     Indication: RHEUMATOID ARTHRITIS
     Dosage: 10MG/WK,

REACTIONS (12)
  - CARDIAC MURMUR [None]
  - NORMOCHROMIC NORMOCYTIC ANAEMIA [None]
  - LEUKOPENIA [None]
  - LYMPHOPENIA [None]
  - BLOOD IRON DECREASED [None]
  - IRON BINDING CAPACITY TOTAL INCREASED [None]
  - VISCERAL LEISHMANIASIS [None]
  - RED BLOOD CELL SEDIMENTATION RATE INCREASED [None]
  - PALLOR [None]
  - C-REACTIVE PROTEIN INCREASED [None]
  - BLOOD FIBRINOGEN INCREASED [None]
  - HYPERGAMMAGLOBULINAEMIA [None]
